FAERS Safety Report 4605815-2 (Version None)
Quarter: 2005Q1

REPORT INFORMATION
  Report Type: 
  Country: None (occurrence: None)
  Receive Date: 20050116
  Receipt Date: 20041222
  Transmission Date: 20050727
  Serious: Yes (Hospitalization, Other)
  Sender: FDA-Public Use
  Company Number: HQWYE267028DEC04

PATIENT
  Age: 48 Year
  Sex: Female

DRUGS (8)
  1. EFFEXOR [Suspect]
     Indication: ANXIETY
     Dosage: 75 MG, ORAL; DOSE WAS TITRATED UP, ORAL; 300 MG 1X PER 1 DAY, ORAL
     Route: 048
     Dates: end: 20041205
  2. EFFEXOR [Suspect]
     Indication: DEPRESSION
     Dosage: 75 MG, ORAL; DOSE WAS TITRATED UP, ORAL; 300 MG 1X PER 1 DAY, ORAL
     Route: 048
     Dates: end: 20041205
  3. EFFEXOR [Suspect]
     Indication: ANXIETY
     Dosage: 75 MG, ORAL; DOSE WAS TITRATED UP, ORAL; 300 MG 1X PER 1 DAY, ORAL
     Route: 048
     Dates: start: 20041206, end: 20041210
  4. EFFEXOR [Suspect]
     Indication: DEPRESSION
     Dosage: 75 MG, ORAL; DOSE WAS TITRATED UP, ORAL; 300 MG 1X PER 1 DAY, ORAL
     Route: 048
     Dates: start: 20041206, end: 20041210
  5. EFFEXOR [Suspect]
     Indication: ANXIETY
     Dosage: 75 MG, ORAL; DOSE WAS TITRATED UP, ORAL; 300 MG 1X PER 1 DAY, ORAL
     Route: 048
     Dates: start: 20030415
  6. EFFEXOR [Suspect]
     Indication: DEPRESSION
     Dosage: 75 MG, ORAL; DOSE WAS TITRATED UP, ORAL; 300 MG 1X PER 1 DAY, ORAL
     Route: 048
     Dates: start: 20030415
  7. ADVAIR (FLUTICASONE PROPIONATE/SALMETEROL XINAFOATE) [Concomitant]
  8. XANAX [Concomitant]

REACTIONS (5)
  - BLOOD CREATINE PHOSPHOKINASE INCREASED [None]
  - EYE SWELLING [None]
  - NAUSEA [None]
  - PAIN [None]
  - RHABDOMYOLYSIS [None]
